FAERS Safety Report 5482370-9 (Version None)
Quarter: 2007Q4

REPORT INFORMATION
  Report Type: 
  Country: None (occurrence: None)
  Receive Date: 20071011
  Receipt Date: 20071008
  Transmission Date: 20080405
  Serious: Yes (Hospitalization, Other)
  Sender: FDA-Public Use
  Company Number: A0686967A

PATIENT
  Age: 71 Year
  Sex: Female
  Weight: 70.8 kg

DRUGS (13)
  1. DIGOXIN [Suspect]
     Indication: DRUG USE FOR UNKNOWN INDICATION
  2. TEMODAR [Suspect]
     Indication: GLIOBLASTOMA MULTIFORME
     Dosage: 75MGM2 PER DAY
     Route: 048
     Dates: start: 20070806, end: 20070917
  3. ASPIRIN [Suspect]
     Indication: DRUG USE FOR UNKNOWN INDICATION
     Route: 065
  4. DECADRON [Suspect]
     Indication: DRUG USE FOR UNKNOWN INDICATION
  5. DUONEB [Suspect]
     Indication: DRUG USE FOR UNKNOWN INDICATION
  6. LASIX [Suspect]
     Indication: DRUG USE FOR UNKNOWN INDICATION
  7. LEVAQUIN [Suspect]
     Indication: DRUG USE FOR UNKNOWN INDICATION
  8. MUCOMYST [Suspect]
     Indication: DRUG USE FOR UNKNOWN INDICATION
  9. RADIATION THERAPY [Suspect]
     Indication: DRUG USE FOR UNKNOWN INDICATION
     Dosage: 60GY CUMULATIVE DOSE
     Dates: start: 20070806, end: 20070917
  10. COLACE [Concomitant]
  11. LIPITOR [Concomitant]
  12. LOVENOX [Concomitant]
  13. METOPROLOL TARTRATE [Concomitant]

REACTIONS (7)
  - EATING DISORDER [None]
  - FATIGUE [None]
  - HALLUCINATION [None]
  - LETHARGY [None]
  - METABOLIC ENCEPHALOPATHY [None]
  - SOMNOLENCE [None]
  - VISUAL DISTURBANCE [None]
